FAERS Safety Report 12742879 (Version 5)
Quarter: 2017Q3

REPORT INFORMATION
  Report Type: Spontaneous
  Country: US (occurrence: US)
  Receive Date: 20160914
  Receipt Date: 20170927
  Transmission Date: 20171127
  Serious: Yes (Hospitalization, Other)
  Sender: FDA-Public Use
  Company Number: US-SAOL THERAPEUTICS-2016SAO00618

PATIENT
  Age: 12 Year
  Sex: Female
  Weight: 34.92 kg

DRUGS (10)
  1. LIORESAL [Suspect]
     Active Substance: BACLOFEN
     Dosage: 390 ?G, \DAY
     Route: 037
  2. LIORESAL [Suspect]
     Active Substance: BACLOFEN
     Dosage: 75 ?G, \DAY
     Dates: start: 20170910
  3. LIORESAL [Suspect]
     Active Substance: BACLOFEN
     Dosage: 74.98 ?G, \DAY
     Route: 037
     Dates: start: 20170910
  4. LIORESAL [Suspect]
     Active Substance: BACLOFEN
     Dosage: 50 ?G, \DAY
  5. LIORESAL [Suspect]
     Active Substance: BACLOFEN
     Dosage: 50 ?G, \DAY
     Dates: end: 20170910
  6. LIORESAL [Suspect]
     Active Substance: BACLOFEN
     Dosage: 130 ?G, \DAY
     Route: 037
  7. LIORESAL [Suspect]
     Active Substance: BACLOFEN
     Dosage: 50 ?G, \DAY
     Route: 037
  8. LIORESAL [Suspect]
     Active Substance: BACLOFEN
     Dosage: UNK
  9. LIORESAL [Suspect]
     Active Substance: BACLOFEN
     Dosage: 100 ?G, \DAY
     Route: 037
  10. LIORESAL [Suspect]
     Active Substance: BACLOFEN
     Dosage: 360 ?G, \DAY
     Route: 037

REACTIONS (13)
  - Vomiting [Unknown]
  - Seroma [Not Recovered/Not Resolved]
  - Headache [Unknown]
  - Muscle spasms [Not Recovered/Not Resolved]
  - Device dislocation [Not Recovered/Not Resolved]
  - Drug withdrawal syndrome [Unknown]
  - Nausea [Unknown]
  - Photophobia [Unknown]
  - Bacteraemia [Unknown]
  - Therapy non-responder [Not Recovered/Not Resolved]
  - Device occlusion [Recovered/Resolved]
  - Cerebrospinal fluid leakage [Not Recovered/Not Resolved]
  - Hypotonia [Recovered/Resolved]

NARRATIVE: CASE EVENT DATE: 201608
